FAERS Safety Report 5160576-6 (Version None)
Quarter: 2006Q4

REPORT INFORMATION
  Report Type: 
  Country: None (occurrence: None)
  Receive Date: 20061121
  Receipt Date: 20061107
  Transmission Date: 20070319
  Serious: Yes (Death, Hospitalization, Other)
  Sender: FDA-Public Use
  Company Number: 2006137126

PATIENT
  Age: 45 Year
  Sex: Female

DRUGS (1)
  1. CHANTIX [Suspect]
     Indication: SMOKING CESSATION THERAPY
     Dates: start: 20060101

REACTIONS (3)
  - BLISTER [None]
  - CARDIO-RESPIRATORY ARREST [None]
  - VOCAL CORD DISORDER [None]
